FAERS Safety Report 4701338-0 (Version None)
Quarter: 2005Q2

REPORT INFORMATION
  Report Type: 
  Country: None (occurrence: None)
  Receive Date: 20050627
  Receipt Date: 20050614
  Transmission Date: 20051028
  Serious: No
  Sender: FDA-Public Use
  Company Number: 2005JP001139

PATIENT
  Age: 70 Year
  Sex: Female

DRUGS (3)
  1. FUNGUARD (MICAFUNGIN) INJECTION [Suspect]
     Indication: FUNGAEMIA
     Dosage: 150.00 MG, UID/QD, IV DRIP
     Route: 041
     Dates: start: 20050515, end: 20050531
  2. LOXONIN (LOXOPROFEN SODIUM) TABLET [Suspect]
     Indication: PYREXIA
     Dosage: 60.00 MG, BID, ORAL
     Route: 048
     Dates: start: 20050525, end: 20050531
  3. FAMOTIDINE [Concomitant]

REACTIONS (1)
  - TOXIC SKIN ERUPTION [None]
